FAERS Safety Report 6281959-7 (Version None)
Quarter: 2009Q3

REPORT INFORMATION
  Report Type: 
  Country: None (occurrence: None)
  Receive Date: 20090724
  Receipt Date: 20090721
  Transmission Date: 20100115
  Serious: Yes (Hospitalization)
  Sender: FDA-Public Use
  Company Number: FR-BRISTOL-MYERS SQUIBB COMPANY-14710636

PATIENT
  Age: 79 Year
  Sex: Male

DRUGS (9)
  1. COAPROVEL [Suspect]
     Dosage: 1 DF= 300 MG/12.5 MG
     Route: 048
     Dates: start: 20070201
  2. NORSET [Suspect]
     Indication: DEPRESSION
     Route: 048
     Dates: start: 20090626, end: 20090630
  3. SECTRAL [Concomitant]
     Dosage: 1 DF =SECTRAL 200MG ONE TABLET ONCE A DAY
     Route: 048
     Dates: start: 20010101
  4. ZOCOR [Concomitant]
     Dosage: 1 DF =ZOCOR 20 MG 1 TAB
     Route: 048
     Dates: start: 20000101
  5. PERMIXON [Concomitant]
     Dosage: 1 DF = PERMIXON 160 MG ONE CAPSULE TWICE A DAY
     Route: 048
     Dates: start: 20090101
  6. RIVOTRIL [Concomitant]
     Dosage: 1 DF =RIVOTRIL 2.5 MG/ML TWO INTAKES THREE TIMES A DAY
     Route: 048
     Dates: start: 20090626
  7. PREVISCAN [Concomitant]
     Dosage: 1 DF= PREVISCAN 20 MG ONE TABLET ONCE A DAY
     Route: 048
     Dates: start: 19990101
  8. SKENAN [Concomitant]
     Dosage: 1 DF = SKENAN SR 30 MG ONE CAPSULE TWICE A DAY
     Route: 048
     Dates: start: 20090501, end: 20090702
  9. ACTISKENAN CAPS [Concomitant]
     Indication: PAIN
     Dosage: ACTISKENAN 10 MG MAXIMUM 6 CAPSULES DAILY IF PAIN ONE INTAKE ONCE A DAY AT REQUEST
     Route: 048
     Dates: start: 20090501, end: 20090702

REACTIONS (2)
  - CONFUSIONAL STATE [None]
  - HYPONATRAEMIA [None]
